FAERS Safety Report 6114448-0 (Version None)
Quarter: 2009Q1

REPORT INFORMATION
  Report Type: 
  Country: None (occurrence: None)
  Receive Date: 20090313
  Receipt Date: 20090303
  Transmission Date: 20090719
  Serious: Yes (Other)
  Sender: FDA-Public Use
  Company Number: PHHY2009CR07561

PATIENT
  Age: 67 Year
  Sex: Female

DRUGS (7)
  1. PANTECTA [Suspect]
     Dosage: 40 MG DAILY
     Route: 048
  2. PANTECTA [Suspect]
     Dosage: UNK
  3. EXFORGE [Suspect]
     Indication: HYPERTENSION
     Dosage: 10/320 MG PER DAY
     Route: 048
  4. MENEPAROL (AMINO ACIDS/CYANOCOBALAMIN/LIVER EXTRACT) [Concomitant]
  5. INSULIN [Concomitant]
     Dosage: 25 U PER DAY
     Route: 058
  6. HYDRALAZINE HCL [Concomitant]
     Dosage: 12.5 MG PER DAY
     Route: 048
  7. FOSAMAX [Concomitant]
     Dosage: 70

REACTIONS (4)
  - BONE DENSITOMETRY [None]
  - FALL [None]
  - OSTEOPOROSIS [None]
  - RIB FRACTURE [None]
